APPROVED DRUG PRODUCT: IBUPROFEN
Active Ingredient: IBUPROFEN
Strength: EQ 200MG FREE ACID AND POTASSIUM SALT
Dosage Form/Route: CAPSULE;ORAL
Application: A217236 | Product #001
Applicant: PATHEON SOFTGELS BV
Approved: Feb 13, 2024 | RLD: No | RS: No | Type: OTC